FAERS Safety Report 12986844 (Version 1)
Quarter: 2016Q4

REPORT INFORMATION
  Report Type: Spontaneous
  Country: US (occurrence: US)
  Receive Date: 20161130
  Receipt Date: 20161130
  Transmission Date: 20170207
  Serious: Yes (Other)
  Sender: FDA-Public Use
  Company Number: US-009507513-1611USA011271

PATIENT
  Age: 26 Year
  Sex: Female
  Weight: 92.97 kg

DRUGS (1)
  1. NUVARING [Suspect]
     Active Substance: ETHINYL ESTRADIOL\ETONOGESTREL
     Indication: CONTRACEPTION
     Dosage: 28 DAYS INSIDE VAGINA AND FEW HOURS OUT INSTEAD OF RING FREE BREAK
     Route: 067

REACTIONS (6)
  - Amenorrhoea [Recovered/Resolved]
  - Inappropriate schedule of drug administration [Unknown]
  - Pregnancy with contraceptive device [Unknown]
  - Incorrect drug administration duration [Unknown]
  - Unintended pregnancy [Unknown]
  - Menstrual disorder [Recovered/Resolved]
